FAERS Safety Report 5883559-7 (Version None)
Quarter: 2008Q3

REPORT INFORMATION
  Report Type: 
  Country: None (occurrence: None)
  Receive Date: 20080915
  Receipt Date: 20080711
  Transmission Date: 20090109
  Serious: No
  Sender: FDA-Public Use
  Company Number: US-BAYER-200828771NA

PATIENT
  Age: 16 Year
  Sex: Female
  Weight: 61 kg

DRUGS (1)
  1. YAZ [Suspect]
     Indication: OVARIAN CYST
     Route: 048
     Dates: start: 20080630

REACTIONS (2)
  - COITAL BLEEDING [None]
  - OFF LABEL USE [None]
